FAERS Safety Report 4593672-2 (Version None)
Quarter: 2005Q1

REPORT INFORMATION
  Report Type: 
  Country: None (occurrence: None)
  Receive Date: 20050224
  Receipt Date: 20041025
  Transmission Date: 20050727
  Serious: No
  Sender: FDA-Public Use
  Company Number: US-BRISTOL-MYERS SQUIBB COMPANY-12751996

PATIENT
  Age: 54 Year
  Sex: Female
  Weight: 89 kg

DRUGS (2)
  1. EXCEDRIN (MIGRAINE) [Suspect]
     Indication: ARTHRITIS
     Dosage: CHANGED DOSAGE TO 2 DOSE FORM EVERY 5 DAYS
     Route: 048
  2. EXCEDRIN (MIGRAINE) [Suspect]
     Indication: HEADACHE
     Dosage: CHANGED DOSAGE TO 2 DOSE FORM EVERY 5 DAYS
     Route: 048

REACTIONS (3)
  - ABDOMINAL PAIN UPPER [None]
  - NAUSEA [None]
  - ULCER [None]
